FAERS Safety Report 15735845 (Version 3)
Quarter: 2019Q1

REPORT INFORMATION
  Report Type: Report from Study
  Country: HU (occurrence: HU)
  Receive Date: 20181218
  Receipt Date: 20190212
  Transmission Date: 20190417
  Serious: Yes (Other)
  Sender: FDA-Public Use
  Company Number: PHHY2018HU178068

PATIENT
  Age: 49 Year
  Sex: Female

DRUGS (6)
  1. DULSEVIA [Concomitant]
     Indication: PRODUCT USED FOR UNKNOWN INDICATION
     Route: 065
  2. SPITOMIN [Concomitant]
     Indication: PRODUCT USED FOR UNKNOWN INDICATION
     Route: 065
  3. MIRZATEN [Concomitant]
     Active Substance: MIRTAZAPINE
     Indication: PRODUCT USED FOR UNKNOWN INDICATION
     Route: 065
  4. EUCREAS [Suspect]
     Active Substance: METFORMIN HYDROCHLORIDE\VILDAGLIPTIN
     Indication: DIABETES MELLITUS
     Dosage: 2 DF (METFORMIN 1000MG, VILDAGLIPTIN 50MG), QD
     Route: 048
     Dates: start: 20181201
  5. RIVOTRIL [Concomitant]
     Active Substance: CLONAZEPAM
     Indication: PRODUCT USED FOR UNKNOWN INDICATION
     Route: 065
  6. TEGRETOL [Suspect]
     Active Substance: CARBAMAZEPINE
     Indication: PRODUCT USED FOR UNKNOWN INDICATION
     Route: 065

REACTIONS (13)
  - Blood glucose decreased [Recovered/Resolved]
  - Renal disorder [Recovered/Resolved]
  - Blood glucose increased [Recovered/Resolved]
  - Glycosylated haemoglobin increased [Recovered/Resolved]
  - Weight decreased [Unknown]
  - Dizziness [Recovered/Resolved]
  - Diabetic nephropathy [Not Recovered/Not Resolved]
  - Diabetic vascular disorder [Not Recovered/Not Resolved]
  - Asthenia [Recovered/Resolved]
  - Cardiac disorder [Recovered/Resolved]
  - Blood glucose abnormal [Not Recovered/Not Resolved]
  - Blood glucose fluctuation [Recovered/Resolved]
  - Schizophrenia [Unknown]

NARRATIVE: CASE EVENT DATE: 20181026
